FAERS Safety Report 4322751-X (Version None)
Quarter: 2004Q1

REPORT INFORMATION
  Report Type: 
  Country: None (occurrence: None)
  Receive Date: 20040324
  Receipt Date: 20040311
  Transmission Date: 20041129
  Serious: Yes (Other)
  Sender: FDA-Public Use
  Company Number: AU-GLAXOSMITHKLINE-B0326452A

PATIENT
  Sex: Female

DRUGS (1)
  1. ZYBAN [Suspect]
     Indication: SMOKING CESSATION THERAPY
     Dosage: 1TAB TWICE PER DAY
     Route: 048

REACTIONS (3)
  - AGGRESSION [None]
  - ANGER [None]
  - HEADACHE [None]
